FAERS Safety Report 12762493 (Version 1)
Quarter: 2016Q3

REPORT INFORMATION
  Report Type: Spontaneous
  Country: US (occurrence: US)
  Receive Date: 20160915
  Receipt Date: 20160915
  Transmission Date: 20161109
  Serious: No
  Sender: FDA-Public Use
  Company Number: None

PATIENT
  Sex: Female

DRUGS (1)
  1. STIVARGA [Suspect]
     Active Substance: REGORAFENIB
     Indication: COLON CANCER
     Dosage: 120MG QD 21 DAYS ON 7 DAYS OFF PO
     Route: 048
     Dates: start: 20160421

REACTIONS (3)
  - Erythema [None]
  - Peripheral swelling [None]
  - Alopecia [None]
